FAERS Safety Report 5112770-8 (Version None)
Quarter: 2006Q3

REPORT INFORMATION
  Report Type: 
  Country: None (occurrence: None)
  Receive Date: 20060802
  Receipt Date: 20060421
  Transmission Date: 20061208
  Serious: No
  Sender: FDA-Public Use
  Company Number: 200613893US

PATIENT
  Age: 45 Year
  Sex: Female
  Weight: 61.36 kg

DRUGS (4)
  1. KETEK [Suspect]
     Indication: BRONCHITIS
     Dates: start: 20060420
  2. KETEK [Suspect]
     Indication: BRONCHITIS
     Dosage: QD
     Dates: start: 20060427
  3. GUAIFENESIN [Suspect]
     Dates: start: 20060420
  4. LORATADINE/PSEUDOEPHEDRINE SULFATE [Concomitant]

REACTIONS (3)
  - DYSPHAGIA [None]
  - DYSPNOEA [None]
  - PHARYNGEAL OEDEMA [None]
